FAERS Safety Report 5339808-7 (Version None)
Quarter: 2007Q2

REPORT INFORMATION
  Report Type: 
  Country: None (occurrence: None)
  Receive Date: 20070525
  Receipt Date: 20070516
  Transmission Date: 20071010
  Serious: Yes (Hospitalization)
  Sender: FDA-Public Use
  Company Number: 013586

PATIENT
  Age: 15 Year
  Sex: Male

DRUGS (4)
  1. CLARAVIS [Suspect]
     Dosage: SEE IMAGE
     Route: 048
     Dates: start: 20061020, end: 20061120
  2. CLARAVIS [Suspect]
     Dosage: SEE IMAGE
     Route: 048
     Dates: start: 20061121, end: 20061221
  3. CLARAVIS [Suspect]
     Dosage: SEE IMAGE
     Route: 048
     Dates: start: 20061222
  4. CLARAVIS [Suspect]
     Dosage: SEE IMAGE
     Route: 048
     Dates: start: 20070306

REACTIONS (1)
  - SURGERY [None]
